FAERS Safety Report 12371954 (Version 1)
Quarter: 2016Q2

REPORT INFORMATION
  Report Type: Report from Study
  Country: US (occurrence: US)
  Receive Date: 20160516
  Receipt Date: 20160516
  Transmission Date: 20160815
  Serious: Yes (Other)
  Sender: FDA-Public Use
  Company Number: US-AMGEN-USASL2016060798

PATIENT
  Age: 48 Year
  Sex: Female

DRUGS (2)
  1. ENBREL [Suspect]
     Active Substance: ETANERCEPT
     Indication: PSORIATIC ARTHROPATHY
     Dosage: UNK, QWK
     Route: 065
     Dates: start: 201511
  2. METHOTREXATE [Concomitant]
     Active Substance: METHOTREXATE
     Dosage: UNK

REACTIONS (3)
  - Respiratory tract infection [Unknown]
  - Injection site pain [Unknown]
  - Incorrect product storage [Unknown]
